FAERS Safety Report 9797884 (Version 1)
Quarter: 2014Q1

REPORT INFORMATION
  Report Type: Spontaneous
  Country: US (occurrence: None)
  Receive Date: 20140102
  Receipt Date: 20140102
  Transmission Date: 20141002
  Serious: Yes (Hospitalization)
  Sender: FDA-Public Use
  Company Number: None

PATIENT
  Age: 78 Year
  Sex: Male
  Weight: 90.7 kg

DRUGS (2)
  1. DENOSUMAB [Suspect]
     Indication: OSTEOPOROSIS
     Dosage: 60MG, ONCE, SQ
     Dates: start: 20131121, end: 20131121
  2. FUROSEMIDE [Suspect]
     Indication: CARDIAC FAILURE CONGESTIVE
     Route: 048
     Dates: start: 20131023, end: 20131212

REACTIONS (8)
  - Hypocalcaemia [None]
  - Nausea [None]
  - Vomiting [None]
  - Malaise [None]
  - Fatigue [None]
  - Treatment noncompliance [None]
  - Vitamin D deficiency [None]
  - Condition aggravated [None]
